FAERS Safety Report 7234081 (Version 2)
Quarter: 2014Q4

REPORT INFORMATION
  Report Type: Report from Study
  Country: TW (occurrence: TW)
  Receive Date: 20091230
  Receipt Date: 20141006
  Transmission Date: 20150529
  Serious: Yes (Death, Hospitalization)
  Sender: FDA-Public Use
  Company Number: PHHY2009TW54714

PATIENT
  Age: 50 Year
  Sex: Male
  Weight: 61 kg

DRUGS (2)
  1. NEORAL [Suspect]
     Active Substance: CYCLOSPORINE
     Indication: LIVER TRANSPLANT
     Dosage: 250 MG DAILY
     Route: 048
     Dates: start: 20080722, end: 20090118
  2. NEORAL [Suspect]
     Active Substance: CYCLOSPORINE
     Indication: IMMUNOSUPPRESSION

REACTIONS (15)
  - Septic shock [Fatal]
  - Dyspnoea [Fatal]
  - Sputum retention [Fatal]
  - Fistula [Unknown]
  - Blood triglycerides increased [Unknown]
  - Bile duct obstruction [Fatal]
  - Abdominal abscess [Unknown]
  - Blood creatinine increased [Not Recovered/Not Resolved]
  - Respiratory failure [Fatal]
  - Acidosis [Fatal]
  - Atelectasis [Fatal]
  - Haemoglobin decreased [Not Recovered/Not Resolved]
  - Bile duct stenosis [Fatal]
  - Cholangitis acute [Fatal]
  - Pyrexia [Unknown]

NARRATIVE: CASE EVENT DATE: 20081023
